FAERS Safety Report 15327980 (Version 1)
Quarter: 2018Q3

REPORT INFORMATION
  Report Type: Spontaneous
  Country: JP (occurrence: JP)
  Receive Date: 20180828
  Receipt Date: 20180828
  Transmission Date: 20181010
  Serious: Yes (Hospitalization)
  Sender: FDA-Public Use
  Company Number: JP-ELI_LILLY_AND_COMPANY-JP201808010791

PATIENT
  Age: 87 Year
  Sex: Female

DRUGS (2)
  1. DULOXETINE HYDROCHLORIDE. [Suspect]
     Active Substance: DULOXETINE HYDROCHLORIDE
     Indication: BACK PAIN
     Dosage: 40 MG, EACH EVENING
     Route: 048
     Dates: start: 201802
  2. NEXIUM [Concomitant]
     Active Substance: ESOMEPRAZOLE MAGNESIUM
     Indication: GASTROOESOPHAGEAL REFLUX DISEASE
     Route: 048

REACTIONS (6)
  - Weight decreased [Unknown]
  - Fracture [Unknown]
  - Alopecia [Unknown]
  - Somnolence [Not Recovered/Not Resolved]
  - Thirst [Unknown]
  - Constipation [Unknown]

NARRATIVE: CASE EVENT DATE: 2018
